FAERS Safety Report 5096199-7 (Version None)
Quarter: 2006Q3

REPORT INFORMATION
  Report Type: 
  Country: None (occurrence: None)
  Receive Date: 20060831
  Receipt Date: 20060823
  Transmission Date: 20061208
  Serious: Yes (Other)
  Sender: FDA-Public Use
  Company Number: 2006102190

PATIENT
  Age: 4 Month

DRUGS (1)
  1. INFANTS' PEDIACARE DECONGESTANT (PSEUDOEPHEDRINE) [Suspect]
     Dosage: 5 ML, ORAL
     Route: 048
     Dates: start: 20060823

REACTIONS (2)
  - CRYING [None]
  - ILL-DEFINED DISORDER [None]
